FAERS Safety Report 13260748 (Version 1)
Quarter: 2017Q1

REPORT INFORMATION
  Report Type: Spontaneous
  Country: CN (occurrence: CN)
  Receive Date: 20170222
  Receipt Date: 20170222
  Transmission Date: 20170428
  Serious: Yes (Hospitalization, Other)
  Sender: FDA-Public Use
  Company Number: CN-009507513-1702CHN009560

PATIENT
  Age: 19 Year
  Sex: Female

DRUGS (10)
  1. DIANE (CYPROTERONE ACETATE\ETHINYL ESTRADIOL) [Suspect]
     Active Substance: CYPROTERONE ACETATE\ETHINYL ESTRADIOL
     Indication: VAGINAL HAEMORRHAGE
     Dosage: UNK
  2. YASMIN [Suspect]
     Active Substance: DROSPIRENONE\ETHINYL ESTRADIOL
     Indication: VAGINAL HAEMORRHAGE
     Dosage: 2 DF, QD
     Route: 048
     Dates: start: 201410
  3. NORETHINDRONE. [Concomitant]
     Active Substance: NORETHINDRONE
     Dosage: UNK
     Route: 048
     Dates: start: 20160222
  4. MARVELON [Suspect]
     Active Substance: DESOGESTREL\ETHINYL ESTRADIOL
     Indication: DYSFUNCTIONAL UTERINE BLEEDING
  5. YASMIN [Suspect]
     Active Substance: DROSPIRENONE\ETHINYL ESTRADIOL
     Indication: DYSFUNCTIONAL UTERINE BLEEDING
  6. PROGYNOVA [Suspect]
     Active Substance: ESTRADIOL VALERATE
     Indication: MENSTRUAL CYCLE MANAGEMENT
     Dosage: 2 MG, QD
     Route: 048
     Dates: start: 201410
  7. PROGYNOVA [Suspect]
     Active Substance: ESTRADIOL VALERATE
     Dosage: 9 MG, UNK
     Route: 048
     Dates: start: 201502
  8. CLIMEN [Suspect]
     Active Substance: CYPROTERONE ACETATE\ESTRADIOL VALERATE
     Indication: MENSTRUAL CYCLE MANAGEMENT
     Dosage: UNK
     Route: 048
  9. DIANE (CYPROTERONE ACETATE\ETHINYL ESTRADIOL) [Suspect]
     Active Substance: CYPROTERONE ACETATE\ETHINYL ESTRADIOL
     Dosage: UNK
  10. MARVELON [Suspect]
     Active Substance: DESOGESTREL\ETHINYL ESTRADIOL
     Indication: VAGINAL HAEMORRHAGE
     Dosage: UNK
     Route: 048

REACTIONS (7)
  - Arteriovenous fistula [Unknown]
  - Vaginal haemorrhage [Not Recovered/Not Resolved]
  - Uterine mass [Unknown]
  - Drug ineffective for unapproved indication [Unknown]
  - Abnormal withdrawal bleeding [Unknown]
  - Metrorrhagia [Unknown]
  - Off label use [Unknown]

NARRATIVE: CASE EVENT DATE: 201502
